FAERS Safety Report 10693566 (Version 1)
Quarter: 2015Q1

REPORT INFORMATION
  Report Type: Other
  Country: GB (occurrence: GB)
  Receive Date: 20150106
  Receipt Date: 20150106
  Transmission Date: 20150721
  Serious: Yes (Hospitalization)
  Sender: FDA-Public Use
  Company Number: GB-MYLANLABS-2015M1000031

PATIENT

DRUGS (1)
  1. AMIODARONE [Suspect]
     Active Substance: AMIODARONE
     Dosage: 200 MG, QD (IN THE MORNING.)
     Route: 048

REACTIONS (3)
  - Presyncope [Unknown]
  - Hypothyroidism [Recovering/Resolving]
  - Depressed mood [Unknown]
